FAERS Safety Report 5121047-6 (Version None)
Quarter: 2006Q4

REPORT INFORMATION
  Report Type: 
  Country: None (occurrence: None)
  Receive Date: 20061005
  Receipt Date: 20061002
  Transmission Date: 20070319
  Serious: Yes (Other)
  Sender: FDA-Public Use
  Company Number: 2006UW19121

PATIENT
  Age: 81 Year
  Sex: Female
  Weight: 60.8 kg

DRUGS (2)
  1. ARIMIDEX [Suspect]
     Indication: BREAST CANCER
     Route: 048
     Dates: start: 20060101, end: 20060801
  2. LIPITOR [Concomitant]

REACTIONS (4)
  - DIARRHOEA [None]
  - HOT FLUSH [None]
  - PAIN IN EXTREMITY [None]
  - RENAL IMPAIRMENT [None]
